FAERS Safety Report 6878243-7 (Version None)
Quarter: 2010Q2

REPORT INFORMATION
  Report Type: 
  Country: None (occurrence: None)
  Receive Date: 20100623
  Receipt Date: 20081210
  Transmission Date: 20101027
  Serious: No
  Sender: FDA-Public Use
  Company Number: 2008-00141

PATIENT
  Age: 43 Year
  Sex: Female
  Weight: 76.2043 kg

DRUGS (3)
  1. ZICAM COLD REMEDY GEL SWABS [Suspect]
     Indication: NASOPHARYNGITIS
     Dosage: Q 4 HOURS X 4 DAYS
     Dates: start: 20081206, end: 20081210
  2. MULTI-VITAMIN [Concomitant]
  3. . [Concomitant]

REACTIONS (2)
  - AGEUSIA [None]
  - ANOSMIA [None]
